FAERS Safety Report 19849290 (Version 4)
Quarter: 2021Q4

REPORT INFORMATION
  Report Type: Report from Study
  Country: ES (occurrence: ES)
  Receive Date: 20210917
  Receipt Date: 20211102
  Transmission Date: 20220303
  Serious: Yes (Hospitalization)
  Sender: FDA-Public Use
  Company Number: DE-GLAXOSMITHKLINE-ES2021193346

PATIENT
  Age: 75 Year
  Sex: Male
  Weight: 64.9 kg

DRUGS (32)
  1. DOSTARLIMAB [Suspect]
     Active Substance: DOSTARLIMAB
     Indication: Non-small cell lung cancer
     Dosage: DOSE AT CYCLE 1 - DAY 1
     Dates: start: 20210625, end: 20210625
  2. DOSTARLIMAB [Suspect]
     Active Substance: DOSTARLIMAB
     Dosage: DOSE AT DAY 1
     Dates: start: 20210716, end: 20210716
  3. DOSTARLIMAB [Suspect]
     Active Substance: DOSTARLIMAB
     Dosage: DOSE AT DAY 1
     Dates: start: 20210806, end: 20210806
  4. PEMETREXED [Suspect]
     Active Substance: PEMETREXED
     Indication: Non-small cell lung cancer
     Dosage: DOSE AT CYCLE 1 - DAY 1
     Route: 042
     Dates: start: 20210625, end: 20210625
  5. PEMETREXED [Suspect]
     Active Substance: PEMETREXED
     Dosage: DOSE AT DAY 1
     Route: 042
     Dates: start: 20210716, end: 20210716
  6. PEMETREXED [Suspect]
     Active Substance: PEMETREXED
     Dosage: DOSE AT DAY 1
     Route: 042
     Dates: start: 20210806, end: 20210806
  7. CARBOPLATIN [Suspect]
     Active Substance: CARBOPLATIN
     Indication: Non-small cell lung cancer
     Dosage: DOSE AT CYCLE 1 - DAY 1
     Route: 042
     Dates: start: 20210625, end: 20210625
  8. CARBOPLATIN [Suspect]
     Active Substance: CARBOPLATIN
     Dosage: DOSE AT DAY 1
     Route: 042
     Dates: start: 20210716, end: 20210716
  9. CARBOPLATIN [Suspect]
     Active Substance: CARBOPLATIN
     Dosage: DOSE AT DAY 1
     Route: 042
     Dates: start: 20210806, end: 20210806
  10. FOLIC ACID [Concomitant]
     Active Substance: FOLIC ACID
     Indication: Vitamin supplementation
     Dosage: 5 MG (FREQUENCY = ONCE DAILY)
     Route: 048
     Dates: start: 20210609
  11. AVARIC [Concomitant]
     Indication: Pain
     Dosage: 67 UG (FREQUENCY = OTHER: ONCE EVERY 4H)
     Route: 048
     Dates: start: 20210609
  12. CALCIUM CARBONATE\CHOLECALCIFEROL [Concomitant]
     Active Substance: CALCIUM CARBONATE\CHOLECALCIFEROL
     Indication: Blood calcium decreased
     Dosage: 1000 MG (FREQUENCY = ONCE DAILY)
     Route: 048
     Dates: start: 20210609
  13. FENTANYL [Concomitant]
     Active Substance: FENTANYL
     Indication: Pain
     Dosage: 25 UG (FREQUENCY = OTHER: ONCE EVERY 72H)
     Route: 062
     Dates: start: 20210609
  14. GLICLAZIDE [Concomitant]
     Active Substance: GLICLAZIDE
     Indication: Hyperglycaemia
     Dosage: 60 MG (FREQUENCY = ONCE DAILY)
     Route: 048
     Dates: start: 202101
  15. CALCIFEDIOL [Concomitant]
     Active Substance: CALCIFEDIOL
     Indication: Vitamin supplementation
     Dosage: 0.266 MG (FREQUENCY = ONCE DAILY)
     Route: 048
     Dates: start: 20210609
  16. METAMIZOLE [Concomitant]
     Active Substance: METAMIZOLE
     Indication: Pain
     Dosage: 2 G, BID
     Route: 048
     Dates: start: 20210609
  17. METFORMIN [Concomitant]
     Active Substance: METFORMIN HYDROCHLORIDE
     Indication: Hyperglycaemia
     Dosage: 850 MG, TID
     Route: 048
     Dates: start: 2011
  18. MOVICOL [Concomitant]
     Active Substance: POLYETHYLENE GLYCOL 3350\POTASSIUM CHLORIDE\SODIUM BICARBONATE\SODIUM CHLORIDE
     Indication: Constipation
     Dosage: 1 ENVELOPE (FREQUENCY = ONCE DAILY)
     Route: 048
     Dates: start: 20210609
  19. ACETAMINOPHEN [Concomitant]
     Active Substance: ACETAMINOPHEN
     Indication: Pain
     Dosage: 1 G, BID
     Route: 048
     Dates: start: 20210609
  20. PREDNISONE [Concomitant]
     Active Substance: PREDNISONE
     Dosage: 50 MG (FREQUENCY = ONCE DAILY)
     Route: 048
     Dates: start: 20210908, end: 20210910
  21. BECLOMETHASONE DIPROPIONATE\FORMOTEROL FUMARATE\GLYCOPYRROLATE [Concomitant]
     Active Substance: BECLOMETHASONE DIPROPIONATE\FORMOTEROL FUMARATE\GLYCOPYRROLATE
     Indication: Oxygen consumption increased
     Dosage: 2 PUFF(S), BID
     Route: 050
     Dates: start: 20210609
  22. COTRIMOXAZOLE [Concomitant]
     Active Substance: SULFAMETHOXAZOLE\TRIMETHOPRIM
     Indication: Enteritis
     Dosage: 800 MG (FREQUENCY = OTHER: EVERY 3 DAYS)
     Route: 048
     Dates: start: 20210818, end: 20210920
  23. LEUCOVORIN CALCIUM [Concomitant]
     Active Substance: LEUCOVORIN CALCIUM
     Indication: Supplementation therapy
     Dosage: 15 MG (FREQUENCY = ONCE DAILY)
     Route: 048
     Dates: start: 20210818, end: 20210920
  24. INSULIN ASPART [Concomitant]
     Active Substance: INSULIN ASPART
     Indication: Diabetes mellitus
     Dosage: PENS (FREQUENCY = AS NEEDED)
     Route: 058
     Dates: start: 20210817, end: 20210920
  25. INSULIN GLARGINE [Concomitant]
     Active Substance: INSULIN GLARGINE
     Indication: Diabetes mellitus
     Dosage: 22 UNITS (FREQUENCY = ONCE DAILY)
     Route: 058
     Dates: start: 20210818
  26. IPRATROPIUM BROMIDE [Concomitant]
     Active Substance: IPRATROPIUM BROMIDE
     Indication: Chronic obstructive pulmonary disease
     Dosage: 2 INHALATION (FREQUENCY = AS NEEDED)
     Route: 055
     Dates: start: 20210824
  27. OMEPRAZOLE [Concomitant]
     Active Substance: OMEPRAZOLE
     Indication: Gastrointestinal disorder prophylaxis
     Dosage: 20 MG (FREQUENCY = ONCE DAILY)
     Route: 048
     Dates: start: 20210831
  28. TRISODIUM CITRATE [Concomitant]
     Indication: Constipation
     Dosage: 1 ENEMA (FREQUENCY = AS NEEDED)
     Route: 054
     Dates: start: 20210906, end: 20210916
  29. BUTYLSCOPOLAMINE [Concomitant]
     Active Substance: BUTYLSCOPOLAMINE
     Dosage: UNK
     Dates: start: 20210902, end: 20210902
  30. BUTYLSCOPOLAMINE [Concomitant]
     Active Substance: BUTYLSCOPOLAMINE
     Dosage: UNK
     Dates: start: 20210903, end: 20210907
  31. ONDANSETRON [Concomitant]
     Active Substance: ONDANSETRON
     Dosage: UNK
     Dates: start: 20210902, end: 20210902
  32. METHYLPREDNISOLONE [Concomitant]
     Active Substance: METHYLPREDNISOLONE
     Dosage: UNK
     Dates: start: 20210902, end: 20210906

REACTIONS (1)
  - Pneumonia [Recovered/Resolved]

NARRATIVE: CASE EVENT DATE: 20210909
